FAERS Safety Report 17386505 (Version 1)
Quarter: 2020Q1

REPORT INFORMATION
  Report Type: Spontaneous
  Country: US (occurrence: US)
  Receive Date: 20200206
  Receipt Date: 20200206
  Transmission Date: 20200409
  Serious: No
  Sender: FDA-Public Use
  Company Number: US-009507513-2001USA009668

PATIENT
  Sex: Male

DRUGS (2)
  1. ZOLINZA [Suspect]
     Active Substance: VORINOSTAT
     Dosage: UNK, UNK, ROUND
     Route: 048
     Dates: start: 202001
  2. ZOLINZA [Suspect]
     Active Substance: VORINOSTAT
     Indication: NUT MIDLINE CARCINOMA
     Dosage: UNK, UNK, ROUND
     Route: 048
     Dates: start: 20191228

REACTIONS (2)
  - Drug effective for unapproved indication [Unknown]
  - No adverse event [Unknown]

NARRATIVE: CASE EVENT DATE: 20191228
